FAERS Safety Report 6127415-8 (Version None)
Quarter: 2009Q1

REPORT INFORMATION
  Report Type: 
  Country: None (occurrence: None)
  Receive Date: 20090323
  Receipt Date: 20090317
  Transmission Date: 20090719
  Serious: Yes (Death)
  Sender: FDA-Public Use
  Company Number: PHHO2009US03744

PATIENT
  Sex: Female

DRUGS (1)
  1. DICLOFENAC SODIUM [Suspect]
     Indication: OSTEOARTHRITIS
     Dosage: 75 MG
     Route: 048
     Dates: start: 20081103

REACTIONS (2)
  - CARDIAC ARREST [None]
  - LOSS OF CONSCIOUSNESS [None]
